FAERS Safety Report 7503775-8 (Version None)
Quarter: 2011Q2

REPORT INFORMATION
  Report Type: 
  Country: None (occurrence: None)
  Receive Date: 20110525
  Receipt Date: 20110510
  Transmission Date: 20111010
  Serious: Yes (Hospitalization, Other)
  Sender: FDA-Public Use
  Company Number: JP-JNJFOC-20110205023

PATIENT
  Sex: Female
  Weight: 92 kg

DRUGS (14)
  1. AZULFIDINE [Concomitant]
     Indication: PRODUCT USED FOR UNKNOWN INDICATION
     Route: 048
  2. ATARAX [Concomitant]
     Indication: PRURITUS
     Route: 048
     Dates: start: 20101025, end: 20101227
  3. REMICADE [Suspect]
     Indication: PSORIATIC ARTHROPATHY
     Route: 042
     Dates: start: 20101213
  4. CYCLOSPORINE [Concomitant]
     Indication: PSORIATIC ARTHROPATHY
     Route: 065
  5. ETRETINATE [Concomitant]
     Indication: PSORIATIC ARTHROPATHY
  6. ADALIMUMAB [Suspect]
     Indication: PSORIATIC ARTHROPATHY
  7. STEROIDS NOS [Concomitant]
     Indication: PRODUCT USED FOR UNKNOWN INDICATION
     Route: 065
  8. SULFASALAZINE [Concomitant]
     Indication: PSORIATIC ARTHROPATHY
  9. REMICADE [Suspect]
     Route: 042
     Dates: start: 20101129
  10. ALLELOCK [Concomitant]
     Indication: PRURITUS
     Route: 048
     Dates: start: 20101025, end: 20101227
  11. BIOFERMIN [Concomitant]
     Indication: DIARRHOEA
     Route: 048
     Dates: start: 20100106, end: 20101203
  12. VOLTAREN [Concomitant]
     Indication: ARTHRALGIA
     Route: 048
     Dates: start: 20101108, end: 20101227
  13. REMICADE [Suspect]
     Route: 042
     Dates: end: 20110214
  14. TIGASON [Concomitant]
     Indication: PRODUCT USED FOR UNKNOWN INDICATION
     Route: 048

REACTIONS (2)
  - PSEUDOLYMPHOMA [None]
  - ARTHRALGIA [None]
